FAERS Safety Report 7349094-4 (Version None)
Quarter: 2011Q1

REPORT INFORMATION
  Report Type: 
  Country: None (occurrence: None)
  Receive Date: 20110303
  Receipt Date: 20110218
  Transmission Date: 20110831
  Serious: Yes (Other)
  Sender: FDA-Public Use
  Company Number: 028170

PATIENT
  Sex: Female
  Weight: 78 kg

DRUGS (3)
  1. METHYLPHENIDATE HYDROCHLORIDE (EQUASYM RETARD) [Suspect]
     Dosage: (1 TABLET AT 30 MG ORAL)
     Route: 048
  2. THOMAPYRIN BEI KOPFSCHMERZ (THOMAPYRIN) [Suspect]
     Dosage: (3 DF)
  3. METHYLPHENIDATE HCL [Suspect]
     Dosage: (110 MG IN TOTAL OVER 8 HOURS)

REACTIONS (3)
  - MULTIPLE DRUG OVERDOSE INTENTIONAL [None]
  - RESTLESSNESS [None]
  - SUICIDE ATTEMPT [None]
